FAERS Safety Report 16074120 (Version 4)
Quarter: 2019Q3

REPORT INFORMATION
  Report Type: Report from Study
  Country: CA (occurrence: CA)
  Receive Date: 20190314
  Receipt Date: 20190807
  Transmission Date: 20191004
  Serious: Yes (Other)
  Sender: FDA-Public Use
  Company Number: CA-PFIZER INC-2019112921

PATIENT
  Sex: Male

DRUGS (5)
  1. BLEOMYCIN SULFATE [Suspect]
     Active Substance: BLEOMYCIN SULFATE
     Indication: GERM CELL CANCER METASTATIC
     Dosage: DURING 1ST CYCLE AND DURING INTENSIFIED CHEMOTHERAPY AT CYCLE 2
  2. PACLITAXEL. [Suspect]
     Active Substance: PACLITAXEL
     Indication: GERM CELL CANCER METASTATIC
     Dosage: DURING INTENSIFIED CHEMOTHERAPY
  3. IFOSFAMIDE. [Suspect]
     Active Substance: IFOSFAMIDE
     Indication: GERM CELL CANCER METASTATIC
     Dosage: DURING INTENSIFIED CHEMOTHERAPY
     Route: 065
  4. CISPLATIN. [Suspect]
     Active Substance: CISPLATIN
     Indication: GERM CELL CANCER METASTATIC
     Dosage: DURING 1ST CYCLE AND DURING INTENSIFIED CHEMOTHERAPY AT CYCLE 2
  5. ETOPOSIDE. [Suspect]
     Active Substance: ETOPOSIDE
     Indication: GERM CELL CANCER METASTATIC
     Dosage: DURING 1ST CYCLE AND DURING INTENSIFIED CHEMOTHERAPY AT CYCLE 2

REACTIONS (1)
  - Peripheral sensory neuropathy [Recovering/Resolving]
